FAERS Safety Report 11895082 (Version 1)
Quarter: 2016Q1

REPORT INFORMATION
  Report Type: Spontaneous
  Country: US (occurrence: None)
  Receive Date: 20160106
  Receipt Date: 20160106
  Transmission Date: 20160526
  Serious: No
  Sender: FDA-Public Use
  Company Number: None

PATIENT
  Age: 16 Year
  Sex: Female

DRUGS (3)
  1. CLEARSKIN BLEMISH CLEARING SPOT TREATMENT [Suspect]
     Active Substance: SALICYLIC ACID
     Indication: ACNE
     Dosage: APPLIED TO A SURFACE, USUALLY THE SKIN
     Dates: start: 20160104, end: 20160105
  2. BIRTH CONTROL [Concomitant]
     Active Substance: UNSPECIFIED INGREDIENT
  3. CLEARSKIN BLEMISH CLEARING FOAMING CLEANSER [Suspect]
     Active Substance: SALICYLIC ACID
     Indication: ACNE
     Dosage: APPLIED TO A SURFACE, USUALLY THE SKIN
     Dates: start: 20160104, end: 20160105

REACTIONS (5)
  - Pruritus [None]
  - Application site erythema [None]
  - Application site swelling [None]
  - Application site warmth [None]
  - Urticaria [None]

NARRATIVE: CASE EVENT DATE: 20160105
